FAERS Safety Report 10921595 (Version 3)
Quarter: 2015Q2

REPORT INFORMATION
  Report Type: Spontaneous
  Country: US (occurrence: US)
  Receive Date: 20150317
  Receipt Date: 20150520
  Transmission Date: 20150821
  Serious: Yes (Hospitalization)
  Sender: FDA-Public Use
  Company Number: US-PFIZER INC-2015091141

PATIENT
  Age: 5 Year
  Sex: Male
  Weight: 36.28 kg

DRUGS (5)
  1. QUILLIVANT XR [Suspect]
     Active Substance: METHYLPHENIDATE HYDROCHLORIDE
     Indication: PSYCHOMOTOR HYPERACTIVITY
     Dosage: 4 ML, SID FOR 6 DAYS
     Route: 048
     Dates: start: 20130518, end: 20130523
  2. QUILLIVANT XR [Suspect]
     Active Substance: METHYLPHENIDATE HYDROCHLORIDE
     Indication: ATTENTION DEFICIT/HYPERACTIVITY DISORDER
     Dosage: 5 ML, SID FOR 9 DAYS
     Route: 048
     Dates: start: 20130524, end: 20130611
  3. RISPERDAL [Concomitant]
     Active Substance: RISPERIDONE
     Dosage: 1 MG, 3X/DAY
  4. VALPROIC ACID. [Concomitant]
     Active Substance: VALPROIC ACID
     Dosage: 625 MG, DAILY (250MG IN MORNING AND 375MG IN EVENING)
  5. QUILLIVANT XR [Suspect]
     Active Substance: METHYLPHENIDATE HYDROCHLORIDE
     Dosage: 25 MG, DAILY
     Route: 048
     Dates: start: 20130513, end: 20130612

REACTIONS (4)
  - Tremor [Recovered/Resolved]
  - Product use issue [Recovered/Resolved]
  - Agitation [Recovered/Resolved]
  - Aggression [Recovered/Resolved]

NARRATIVE: CASE EVENT DATE: 20130513
